FAERS Safety Report 6559746-1 (Version None)
Quarter: 2010Q1

REPORT INFORMATION
  Report Type: 
  Country: None (occurrence: None)
  Receive Date: 20100129
  Receipt Date: 20090910
  Transmission Date: 20100710
  Serious: No
  Sender: FDA-Public Use
  Company Number: US-ABBOTT-09P-163-0597043-00

PATIENT
  Sex: Female
  Weight: 75.364 kg

DRUGS (7)
  1. HUMIRA [Suspect]
     Indication: RHEUMATOID ARTHRITIS
     Route: 058
     Dates: start: 20090702
  2. ARAVA [Concomitant]
     Indication: ARTHRITIS
  3. BENICAR [Concomitant]
     Indication: BLOOD PRESSURE
     Dosage: 40/25 MG
  4. PREDNISONE [Concomitant]
     Indication: DRUG USE FOR UNKNOWN INDICATION
  5. DILTIAZAM [Concomitant]
     Indication: DRUG USE FOR UNKNOWN INDICATION
  6. PLAQUENIL [Concomitant]
     Indication: DRUG USE FOR UNKNOWN INDICATION
  7. CALTRATE 600+D [Concomitant]
     Indication: DRUG USE FOR UNKNOWN INDICATION

REACTIONS (2)
  - ASTHENIA [None]
  - FEELING ABNORMAL [None]
